FAERS Safety Report 24914037 (Version 2)
Quarter: 2025Q1

REPORT INFORMATION
  Report Type: Spontaneous
  Country: US (occurrence: US)
  Receive Date: 20250202
  Receipt Date: 20250330
  Transmission Date: 20250408
  Serious: No
  Sender: SANOFI AVENTIS
  Company Number: US-SA-2025SA030001

PATIENT
  Age: 79 Year
  Sex: Male

DRUGS (4)
  1. DUPIXENT [Suspect]
     Active Substance: DUPILUMAB
     Indication: Dermatitis atopic
     Route: 058
     Dates: start: 202411, end: 202411
  2. DUPIXENT [Suspect]
     Active Substance: DUPILUMAB
     Indication: Eczema
     Dosage: 300MG, QOW
     Route: 058
     Dates: start: 2024
  3. HYDROXYZINE [Concomitant]
     Active Substance: HYDROXYZINE HYDROCHLORIDE
  4. PREDNISONE [Concomitant]
     Active Substance: PREDNISONE

REACTIONS (11)
  - Eczema [Unknown]
  - Eyelid irritation [Recovered/Resolved]
  - Sleep disorder due to a general medical condition [Recovered/Resolved]
  - Skin atrophy [Unknown]
  - Nasal congestion [Unknown]
  - Cough [Unknown]
  - Burning sensation [Unknown]
  - Contusion [Unknown]
  - Nasopharyngitis [Unknown]
  - Pruritus [Recovered/Resolved]
  - Dermatitis atopic [Unknown]

NARRATIVE: CASE EVENT DATE: 20241101
